FAERS Safety Report 17529018 (Version 5)
Quarter: 2022Q2

REPORT INFORMATION
  Report Type: Report from Study
  Country: JP (occurrence: None)
  Receive Date: 20200311
  Receipt Date: 20220623
  Transmission Date: 20220721
  Serious: Yes (Hospitalization)
  Sender: FDA-Public Use
  Company Number: JP-EISAI MEDICAL RESEARCH-EC-2020-071348

PATIENT
  Age: 52 Year
  Sex: Male
  Weight: 74 kg

DRUGS (16)
  1. LENVATINIB [Suspect]
     Active Substance: LENVATINIB
     Indication: Hepatocellular carcinoma
     Dosage: AFTER BREAKFAST
     Route: 048
     Dates: start: 20190713, end: 20190729
  2. LENVATINIB [Suspect]
     Active Substance: LENVATINIB
     Dosage: AFTER BREAKFAST
     Route: 048
     Dates: start: 20190817, end: 20190903
  3. LENVATINIB [Suspect]
     Active Substance: LENVATINIB
     Dosage: AFTER BREAKFAST
     Route: 048
     Dates: start: 20190904, end: 20190911
  4. LENVATINIB [Suspect]
     Active Substance: LENVATINIB
     Dosage: AFTER BREAKFAST
     Route: 048
     Dates: start: 20191003, end: 20200219
  5. SITAGLIPTIN [Concomitant]
     Active Substance: SITAGLIPTIN
     Indication: Diabetes mellitus
     Route: 048
  6. DOSPEROPIN [Concomitant]
     Indication: Hypertension
     Route: 048
  7. CANDESARTAN [Concomitant]
     Active Substance: CANDESARTAN
     Indication: Hypertension
     Route: 048
  8. LEVOTHYROXINE SODIUM [Concomitant]
     Active Substance: LEVOTHYROXINE SODIUM
     Indication: Hypothyroidism
     Route: 048
     Dates: start: 20190911
  9. BIO-THREE [Concomitant]
     Active Substance: HERBALS
     Indication: Diarrhoea
     Route: 048
     Dates: start: 20200219
  10. LOPERAMIDE HYDROCHLORIDE [Concomitant]
     Active Substance: LOPERAMIDE HYDROCHLORIDE
     Indication: Diarrhoea
     Route: 048
     Dates: start: 20200219
  11. ISOLEUCINE\LEUCINE\VALINE [Concomitant]
     Active Substance: ISOLEUCINE\LEUCINE\VALINE
     Indication: Ascites
     Route: 048
     Dates: start: 20200227
  12. ISOLEUCINE\LEUCINE\VALINE [Concomitant]
     Active Substance: ISOLEUCINE\LEUCINE\VALINE
     Indication: Oedema
  13. ISOLEUCINE\LEUCINE\VALINE [Concomitant]
     Active Substance: ISOLEUCINE\LEUCINE\VALINE
     Indication: Hypoalbuminaemia
  14. FUROSEMIDE [Concomitant]
     Active Substance: FUROSEMIDE
     Indication: Ascites
     Route: 048
     Dates: start: 20200208
  15. FUROSEMIDE [Concomitant]
     Active Substance: FUROSEMIDE
     Indication: Oedema
  16. VONOPRAZAN FUMARATE [Concomitant]
     Active Substance: VONOPRAZAN FUMARATE
     Indication: Gastrointestinal haemorrhage
     Route: 048
     Dates: start: 20200304

REACTIONS (3)
  - Gastric ulcer [Recovering/Resolving]
  - Ascites [Recovering/Resolving]
  - Anaemia [Recovering/Resolving]

NARRATIVE: CASE EVENT DATE: 20200208
